FAERS Safety Report 19230626 (Version 3)
Quarter: 2022Q3

REPORT INFORMATION
  Report Type: Report from Study
  Country: CA (occurrence: CA)
  Receive Date: 20210507
  Receipt Date: 20220923
  Transmission Date: 20221027
  Serious: Yes (Death)
  Sender: FDA-Public Use
  Company Number: CA-MYLANLABS-2021M1026844

PATIENT
  Age: 47 Year
  Sex: Female
  Weight: 94.2 kg

DRUGS (1)
  1. OGIVRI [Suspect]
     Active Substance: TRASTUZUMAB-DKST
     Indication: Product used for unknown indication
     Dosage: 150 MILLIGRAM, Q3W
     Route: 065
     Dates: start: 20210420, end: 20210420

REACTIONS (1)
  - Death [Fatal]

NARRATIVE: CASE EVENT DATE: 20210503
